FAERS Safety Report 4286097-0 (Version None)
Quarter: 2004Q1

REPORT INFORMATION
  Report Type: 
  Country: None (occurrence: None)
  Receive Date: 20040203
  Receipt Date: 20040122
  Transmission Date: 20041129
  Serious: Yes (Life-Threatening)
  Sender: FDA-Public Use
  Company Number: HQWYE531922JAN04

PATIENT
  Age: 77 Year
  Sex: Male

DRUGS (6)
  1. AMIODARONE (AMIODARONE, INJECTION) [Suspect]
     Indication: ATRIAL FLUTTER
     Dosage: 300 MG, INTRAVENOUS
     Route: 042
     Dates: start: 20031213, end: 20031213
  2. NICORANDIL (NICORANDIL) [Concomitant]
  3. IMDUR [Concomitant]
  4. FUROSEMIDE [Concomitant]
  5. LANSOPRAZOLE (LANZOPRAZOLE) [Concomitant]
  6. FERROUS SULFATE TAB [Concomitant]

REACTIONS (5)
  - CHEST PAIN [None]
  - DYSPNOEA [None]
  - EYELID OEDEMA [None]
  - HYPOXIA [None]
  - RASH [None]
